FAERS Safety Report 6247846-5 (Version None)
Quarter: 2009Q2

REPORT INFORMATION
  Report Type: 
  Country: None (occurrence: None)
  Receive Date: 20090626
  Receipt Date: 20090616
  Transmission Date: 20091009
  Serious: Yes (Death)
  Sender: FDA-Public Use
  Company Number: AT-BAXTER-2009BH010217

PATIENT
  Age: 39 Year
  Sex: Male

DRUGS (7)
  1. CYCLOPHOSPHAMIDE [Suspect]
     Indication: HODGKIN'S DISEASE
     Route: 065
  2. BLEOMYCIN GENERIC [Suspect]
     Indication: HODGKIN'S DISEASE
     Route: 065
  3. ETOPOSIDE [Suspect]
     Indication: HODGKIN'S DISEASE
     Route: 065
  4. VINCRISTINE SULFATE [Suspect]
     Indication: HODGKIN'S DISEASE
     Route: 065
  5. PREDNISONE TAB [Suspect]
     Indication: HODGKIN'S DISEASE
     Route: 065
  6. PROCARBAZINE [Suspect]
     Indication: HODGKIN'S DISEASE
     Route: 065
  7. DOXORUBICIN HYDROCHLORIDE [Suspect]
     Indication: HODGKIN'S DISEASE
     Route: 065

REACTIONS (1)
  - SYSTEMIC MYCOSIS [None]
